FAERS Safety Report 7895648-6 (Version None)
Quarter: 2011Q4

REPORT INFORMATION
  Report Type: 
  Country: None (occurrence: None)
  Receive Date: 20111106
  Receipt Date: 20110830
  Transmission Date: 20120403
  Serious: No
  Sender: FDA-Public Use
  Company Number: US-AMGEN-USASP2011044282

PATIENT
  Sex: Female

DRUGS (8)
  1. CALCIPOTRIENE [Concomitant]
     Dosage: .005 %, UNK
  2. VITAMIN D [Concomitant]
     Dosage: 400 MG, UNK
  3. SYNTHROID [Concomitant]
     Dosage: 100 MUG, UNK
     Route: 048
  4. ENBREL [Suspect]
     Indication: PRODUCT USED FOR UNKNOWN INDICATION
     Dosage: 50 MG, QWK
  5. PROZAC [Concomitant]
     Dosage: 10 MG, UNK
     Route: 048
  6. PROBIOTIC FEMINA [Concomitant]
     Route: 048
  7. VIT E                              /00110501/ [Concomitant]
     Dosage: 400 IU, UNK
     Route: 048
  8. VIT C [Concomitant]
     Dosage: 500 MG, UNK
     Route: 048

REACTIONS (1)
  - DIARRHOEA [None]
